FAERS Safety Report 22250053 (Version 1)
Quarter: 2023Q2

REPORT INFORMATION
  Report Type: Spontaneous
  Country: GB (occurrence: GB)
  Receive Date: 20230425
  Receipt Date: 20230425
  Transmission Date: 20230721
  Serious: Yes (Other)
  Sender: FDA-Public Use
  Company Number: None

PATIENT
  Age: 25 Year
  Sex: Female

DRUGS (1)
  1. VENLAFAXINE [Suspect]
     Active Substance: VENLAFAXINE HYDROCHLORIDE
     Indication: Obsessive-compulsive disorder
     Dosage: 37.5 MG ONCE A DAY
     Route: 065

REACTIONS (2)
  - Maternal exposure during breast feeding [Unknown]
  - Derealisation [Not Recovered/Not Resolved]

NARRATIVE: CASE EVENT DATE: 20230101
